FAERS Safety Report 7643958-X (Version None)
Quarter: 2011Q3

REPORT INFORMATION
  Report Type: 
  Country: None (occurrence: None)
  Receive Date: 20110729
  Receipt Date: 20100702
  Transmission Date: 20111222
  Serious: No
  Sender: FDA-Public Use
  Company Number: US-GLAXOSMITHKLINE-A0868415A

PATIENT
  Age: 50 Year
  Sex: Female

DRUGS (2)
  1. XANAX [Concomitant]
  2. RANITIDINE [Suspect]
     Indication: GASTROOESOPHAGEAL REFLUX DISEASE
     Dosage: 150MG FOUR TIMES PER DAY
     Route: 048
     Dates: start: 20100401, end: 20100628

REACTIONS (1)
  - POLLAKIURIA [None]
